FAERS Safety Report 15359563 (Version 2)
Quarter: 2018Q3

REPORT INFORMATION
  Report Type: Spontaneous
  Country: FR (occurrence: FR)
  Receive Date: 20180907
  Receipt Date: 20180928
  Transmission Date: 20181010
  Serious: Yes (Other)
  Sender: FDA-Public Use
  Company Number: FR-TEVA-2018-FR-951763

PATIENT
  Sex: Female

DRUGS (1)
  1. LAMOTRIGINE TEVA 100 MG [Suspect]
     Active Substance: LAMOTRIGINE
     Route: 065

REACTIONS (3)
  - Somnolence [Unknown]
  - Malaise [Unknown]
  - Impaired driving ability [Unknown]
